FAERS Safety Report 8583074-6 (Version None)
Quarter: 2012Q3

REPORT INFORMATION
  Report Type: 
  Country: None (occurrence: None)
  Receive Date: 20120809
  Receipt Date: 20120730
  Transmission Date: 20120928
  Serious: Yes (Death, Hospitalization)
  Sender: FDA-Public Use
  Company Number: FR-PFIZER INC-2011316499

PATIENT
  Age: 37 Year
  Sex: Female

DRUGS (6)
  1. FLUOROURACIL [Suspect]
     Indication: GASTROINTESTINAL CARCINOMA
     Dosage: 2400 MG/M2, UNK
     Route: 042
     Dates: start: 20111109, end: 20120201
  2. POTASSIUM [Concomitant]
  3. MORPHINE SULFATE [Concomitant]
  4. IRINOTECAN HCL [Suspect]
     Indication: GASTROINTESTINAL CARCINOMA
     Dosage: 180 MG/M2, UNK
     Route: 042
     Dates: start: 20111109, end: 20120201
  5. ORAMORPH SR [Concomitant]
  6. BRIVANIB ALANINATE [Suspect]
     Indication: GASTROINTESTINAL CARCINOMA
     Dosage: 600 MG, 1X/DAY
     Route: 048
     Dates: start: 20111109, end: 20120201

REACTIONS (3)
  - DEATH [None]
  - VOMITING [None]
  - HYPOKALAEMIA [None]
